FAERS Safety Report 8031287-4 (Version None)
Quarter: 2012Q1

REPORT INFORMATION
  Report Type: 
  Country: None (occurrence: None)
  Receive Date: 20120109
  Receipt Date: 20120103
  Transmission Date: 20120608
  Serious: Yes (Hospitalization)
  Sender: FDA-Public Use
  Company Number: US-GLAXOSMITHKLINE-A0889253A

PATIENT
  Age: 59 Year
  Sex: Female
  Weight: 100 kg

DRUGS (6)
  1. NORVASC [Concomitant]
  2. ATENOLOL [Concomitant]
  3. AVANDIA [Suspect]
     Indication: DIABETES MELLITUS
     Dosage: 8MG PER DAY
     Route: 048
     Dates: start: 20030312, end: 20090101
  4. AVANDARYL [Suspect]
     Indication: DIABETES MELLITUS
     Dosage: .5TAB TWICE PER DAY
     Route: 048
     Dates: start: 20061110
  5. LEVOTHYROXINE SODIUM [Concomitant]
  6. ACCUPRIL [Concomitant]

REACTIONS (4)
  - HAEMORRHAGIC STROKE [None]
  - CARDIAC FAILURE CONGESTIVE [None]
  - CEREBROVASCULAR ACCIDENT [None]
  - CARDIOVASCULAR DISORDER [None]
